FAERS Safety Report 4852034-0 (Version None)
Quarter: 2005Q4

REPORT INFORMATION
  Report Type: 
  Country: None (occurrence: None)
  Receive Date: 20051213
  Receipt Date: 20051129
  Transmission Date: 20060501
  Serious: Yes (Hospitalization)
  Sender: FDA-Public Use
  Company Number: JP-BRISTOL-MYERS SQUIBB COMPANY-13210679

PATIENT
  Age: 47 Year
  Sex: Female

DRUGS (11)
  1. ENDOXAN [Suspect]
     Indication: BREAST CANCER
     Dates: start: 20051018, end: 20051018
  2. FARMORUBICIN [Suspect]
     Indication: BREAST CANCER
     Dates: start: 20051018, end: 20051018
  3. NOVAMIN [Concomitant]
     Dates: start: 20051018, end: 20051020
  4. ISOTONIC SODIUM CHLORIDE [Concomitant]
     Dates: start: 20051018
  5. KYTRIL [Concomitant]
     Dates: start: 20051018
  6. DEXAMETHASONE SODIUM PHOSPHATE [Concomitant]
     Dates: start: 20051018
  7. DEXTROSE 5% [Concomitant]
     Dates: start: 20051018
  8. SOLDEM 3A [Concomitant]
     Dates: start: 20051018
  9. PROTECADIN [Concomitant]
     Dates: start: 20051018, end: 20051023
  10. LORAZEPAM [Concomitant]
     Dates: start: 20051018, end: 20051020
  11. DEXAMETHASONE [Concomitant]
     Dates: start: 20051018, end: 20051023

REACTIONS (2)
  - PRURITUS [None]
  - RASH [None]
